FAERS Safety Report 15673595 (Version 2)
Quarter: 2018Q4

REPORT INFORMATION
  Report Type: Spontaneous
  Country: US (occurrence: US)
  Receive Date: 20181129
  Receipt Date: 20181130
  Transmission Date: 20190205
  Serious: Yes (Other)
  Sender: FDA-Public Use
  Company Number: US-CELGENEUS-USA-20181107709

PATIENT
  Sex: Female

DRUGS (1)
  1. POMALYST [Suspect]
     Active Substance: POMALIDOMIDE
     Indication: PLASMA CELL MYELOMA
     Dosage: 4 MILLIGRAM
     Route: 048
     Dates: start: 20181031

REACTIONS (4)
  - Cardiac flutter [Unknown]
  - Asthenia [Unknown]
  - Decreased appetite [Unknown]
  - Hot flush [Unknown]

NARRATIVE: CASE EVENT DATE: 2018
